FAERS Safety Report 17079684 (Version 1)
Quarter: 2019Q4

REPORT INFORMATION
  Report Type: Spontaneous
  Country: US (occurrence: US)
  Receive Date: 20191127
  Receipt Date: 20191127
  Transmission Date: 20200122
  Serious: No
  Sender: FDA-Public Use
  Company Number: US-AUROBINDO-AUR-APL-2018-060782

PATIENT

DRUGS (1)
  1. LOSARTAN 25MG [Suspect]
     Active Substance: LOSARTAN
     Indication: HYPERTENSION
     Dosage: UNK
     Route: 065
     Dates: start: 20181101

REACTIONS (7)
  - Eye swelling [Recovering/Resolving]
  - Lip swelling [Recovering/Resolving]
  - Peripheral swelling [Recovering/Resolving]
  - Pruritus [Recovering/Resolving]
  - Wheezing [Recovering/Resolving]
  - Blister [Recovering/Resolving]
  - Dyspnoea [Recovering/Resolving]
